FAERS Safety Report 5975607-0 (Version None)
Quarter: 2008Q4

REPORT INFORMATION
  Report Type: 
  Country: None (occurrence: None)
  Receive Date: 20081202
  Receipt Date: 20081120
  Transmission Date: 20090506
  Serious: Yes (Other)
  Sender: FDA-Public Use
  Company Number: US-CELGENEUS-163-20785-08111284

PATIENT
  Sex: Male

DRUGS (3)
  1. THALOMID [Suspect]
     Indication: MULTIPLE MYELOMA
     Route: 048
     Dates: start: 20080613, end: 20080101
  2. THALOMID [Suspect]
     Route: 048
     Dates: start: 20061030, end: 20061101
  3. THALOMID [Suspect]
     Route: 048
     Dates: start: 20070227, end: 20080401

REACTIONS (1)
  - COLON CANCER [None]
